FAERS Safety Report 4305267-6 (Version None)
Quarter: 2004Q1

REPORT INFORMATION
  Report Type: 
  Country: None (occurrence: None)
  Receive Date: 20040226
  Receipt Date: 20021113
  Transmission Date: 20041129
  Serious: Yes (Disabling)
  Sender: FDA-Public Use
  Company Number: US-BRISTOL-MYERS SQUIBB COMPANY-12110375

PATIENT
  Age: 77 Year
  Sex: Female
  Weight: 52 kg

DRUGS (12)
  1. TAXOL [Suspect]
     Indication: LUNG NEOPLASM MALIGNANT
     Dosage: CYCLE 2: 13-NOV-02, 2 MG IN 100 ML SALINE  CYCLE 1: 05-NOV-02
     Route: 042
     Dates: start: 20021105, end: 20021113
  2. COMBIVENT [Suspect]
  3. COMPAZINE [Suspect]
     Indication: PREMEDICATION
  4. CARBOPLATIN [Concomitant]
     Indication: LUNG NEOPLASM MALIGNANT
     Route: 042
  5. FLOVENT [Concomitant]
  6. ISORDIL [Concomitant]
  7. TYLENOL (CAPLET) [Concomitant]
  8. ZOFRAN [Concomitant]
     Indication: PREMEDICATION
  9. BENADRYL [Concomitant]
     Indication: PREMEDICATION
  10. PEPCID [Concomitant]
     Indication: PREMEDICATION
     Route: 042
  11. DEXAMETHASONE [Concomitant]
     Indication: PREMEDICATION
     Route: 048
  12. VISTARIL [Concomitant]
     Indication: PREMEDICATION
     Dosage: PRE-MED FOR CYCLE 2

REACTIONS (5)
  - AGITATION [None]
  - BACK PAIN [None]
  - DYSKINESIA [None]
  - MUSCLE SPASMS [None]
  - NEUROTOXICITY [None]
